FAERS Safety Report 10521898 (Version 1)
Quarter: 2014Q4

REPORT INFORMATION
  Report Type: Spontaneous
  Country: US (occurrence: US)
  Receive Date: 20141016
  Receipt Date: 20141016
  Transmission Date: 20150528
  Serious: Yes (Disabling, Other)
  Sender: FDA-Public Use
  Company Number: US-BAYER-2014-148607

PATIENT
  Age: 17 Year
  Sex: Female

DRUGS (2)
  1. MIRENA [Suspect]
     Active Substance: LEVONORGESTREL
     Dosage: 20 MCG/24HR, CONT
     Route: 015
  2. PARAGARD T380A [Suspect]
     Active Substance: COPPER
     Indication: CONTRACEPTION
     Dosage: UNK
     Route: 015
     Dates: start: 20120827, end: 20120830

REACTIONS (16)
  - Device dislocation [Not Recovered/Not Resolved]
  - Haemorrhage [None]
  - Device malfunction [None]
  - Device defective [None]
  - Scar [None]
  - Activities of daily living impaired [None]
  - Uterine perforation [None]
  - Abdominal pain [None]
  - Infertility female [None]
  - Deformity [None]
  - Pelvic organ injury [None]
  - Anhedonia [None]
  - Abdominal injury [None]
  - Genital haemorrhage [None]
  - Wrong device used [None]
  - Injury [None]

NARRATIVE: CASE EVENT DATE: 201208
